FAERS Safety Report 8537339-4 (Version None)
Quarter: 2012Q3

REPORT INFORMATION
  Report Type: 
  Country: None (occurrence: None)
  Receive Date: 20120725
  Receipt Date: 20120716
  Transmission Date: 20120928
  Serious: Yes (Hospitalization, Other)
  Sender: FDA-Public Use
  Company Number: US-ELI_LILLY_AND_COMPANY-US201007002674

PATIENT
  Sex: Female

DRUGS (10)
  1. FORTEO [Suspect]
     Indication: OSTEOPOROSIS
     Dosage: 20 UG, DAILY (1/D)
     Dates: start: 20100701
  2. VITAMIN D [Concomitant]
  3. CLONAZEPAM [Concomitant]
     Dosage: 0.5 MG, 4/D
  4. FORTEO [Suspect]
     Dosage: 20 UG, DAILY (1/D)
     Dates: start: 20101101
  5. FORTEO [Suspect]
     Dosage: 20 UG, DAILY (1/D)
     Dates: start: 20101101
  6. FISH OIL [Concomitant]
  7. CYMBALTA [Concomitant]
     Dosage: 90 MG, UNK
  8. TRAZODONE HYDROCHLORIDE [Concomitant]
     Dosage: 400 MG, UNK
  9. CLONIDINE [Concomitant]
     Dosage: 0.2 MG, UNK
  10. CALCIUM [Concomitant]

REACTIONS (17)
  - EAR CONGESTION [None]
  - SINUSITIS [None]
  - NON-CARDIAC CHEST PAIN [None]
  - PAIN IN EXTREMITY [None]
  - HIP DEFORMITY [None]
  - BLOOD PRESSURE FLUCTUATION [None]
  - FATIGUE [None]
  - INJECTION SITE PAIN [None]
  - HYPOACUSIS [None]
  - POST-TRAUMATIC STRESS DISORDER [None]
  - KNEE ARTHROPLASTY [None]
  - NAUSEA [None]
  - HIP ARTHROPLASTY [None]
  - MUSCULOSKELETAL PAIN [None]
  - BURSITIS [None]
  - PROCEDURAL PAIN [None]
  - ABASIA [None]
